FAERS Safety Report 11685462 (Version 1)
Quarter: 2015Q4

REPORT INFORMATION
  Report Type: Spontaneous
  Country: US (occurrence: None)
  Receive Date: 20151029
  Receipt Date: 20151029
  Transmission Date: 20160304
  Serious: Yes (Disabling)
  Sender: FDA-Public Use
  Company Number: None

PATIENT
  Age: 63 Year
  Sex: Male
  Weight: 104.33 kg

DRUGS (8)
  1. HUMIRA [Suspect]
     Active Substance: ADALIMUMAB
     Indication: COLITIS
     Dosage: 2 WEEK GIVEN INTO/UNDER THE SKIN
     Dates: start: 20150824, end: 20151006
  2. ACTONEL [Concomitant]
     Active Substance: RISEDRONATE SODIUM
  3. VITAMIN C [Concomitant]
     Active Substance: ASCORBIC ACID
  4. MILK THISTLE [Concomitant]
     Active Substance: MILK THISTLE
  5. VITAMIN D [Concomitant]
     Active Substance: CHOLECALCIFEROL
  6. CALCIUM [Concomitant]
     Active Substance: CALCIUM
  7. PLAQUENIL [Concomitant]
     Active Substance: HYDROXYCHLOROQUINE SULFATE
  8. PREDNISONE. [Concomitant]
     Active Substance: PREDNISONE

REACTIONS (5)
  - Pain in extremity [None]
  - Hypoaesthesia [None]
  - Nausea [None]
  - Diarrhoea [None]
  - Gait disturbance [None]

NARRATIVE: CASE EVENT DATE: 20150910
